FAERS Safety Report 25648590 (Version 1)
Quarter: 2025Q3

REPORT INFORMATION
  Report Type: Spontaneous
  Country: JP (occurrence: JP)
  Receive Date: 20250806
  Receipt Date: 20250806
  Transmission Date: 20251021
  Serious: Yes (Other)
  Sender: GLAXOSMITHKLINE
  Company Number: JP-GSKNCCC-Case-02496459_AE-101653

PATIENT
  Age: 39 Year
  Sex: Female

DRUGS (1)
  1. BENLYSTA [Suspect]
     Active Substance: BELIMUMAB

REACTIONS (4)
  - Angina pectoris [Unknown]
  - Headache [Unknown]
  - Malaise [Unknown]
  - Mobility decreased [Unknown]
